FAERS Safety Report 4444848-6 (Version None)
Quarter: 2004Q3

REPORT INFORMATION
  Report Type: 
  Country: None (occurrence: None)
  Receive Date: 20040903
  Receipt Date: 20040820
  Transmission Date: 20050211
  Serious: Yes (Other)
  Sender: FDA-Public Use
  Company Number: 2004229494JP

PATIENT
  Age: 56 Year
  Sex: Female

DRUGS (3)
  1. EPIRUBICIN [Suspect]
     Indication: BREAST CANCER
     Dosage: UNK, UNK, UNK
     Route: 065
     Dates: start: 20030501
  2. FLUOROURACIL [Suspect]
     Indication: BREAST CANCER
     Dosage: UNK, UNK, UNK
     Route: 065
     Dates: start: 20030501
  3. CYCLOPHOSPHAMIDE [Suspect]
     Indication: BREAST CANCER
     Dosage: UNK, UNK, UNK
     Route: 065
     Dates: start: 20030501

REACTIONS (3)
  - AUTOIMMUNE HEPATITIS [None]
  - BILIARY CIRRHOSIS PRIMARY [None]
  - HEPATITIS [None]
